FAERS Safety Report 4430493-5 (Version None)
Quarter: 2004Q3

REPORT INFORMATION
  Report Type: 
  Country: None (occurrence: None)
  Receive Date: 20040721
  Receipt Date: 20031212
  Transmission Date: 20050211
  Serious: Yes (Life-Threatening)
  Sender: FDA-Public Use
  Company Number: WAES0312USA01411

PATIENT
  Age: 66 Year
  Sex: Female

DRUGS (2)
  1. VIOXX [Suspect]
     Indication: PAIN MANAGEMENT
     Dosage: PO
     Route: 048
     Dates: start: 20030601, end: 20031201
  2. DIOVAN [Concomitant]

REACTIONS (1)
  - BLOOD PRESSURE INCREASED [None]
